FAERS Safety Report 20065188 (Version 3)
Quarter: 2022Q1

REPORT INFORMATION
  Report Type: Report from Study
  Country: HN (occurrence: HN)
  Receive Date: 20211113
  Receipt Date: 20220114
  Transmission Date: 20220423
  Serious: Yes (Hospitalization, Other)
  Sender: FDA-Public Use
  Company Number: HN-NOVARTISPH-NVSC2021HN256912

PATIENT
  Age: 61 Year
  Sex: Male
  Weight: 49.887 kg

DRUGS (5)
  1. SACUBITRIL\VALSARTAN [Suspect]
     Active Substance: SACUBITRIL\VALSARTAN
     Indication: Cardiac disorder
     Dosage: 100 MG, QD (ONCE DAILY IN THE MORNING)
     Route: 065
     Dates: start: 2020, end: 20211105
  2. SACUBITRIL\VALSARTAN [Suspect]
     Active Substance: SACUBITRIL\VALSARTAN
     Dosage: 200 MG, QD (ONCE DAILY IN THE MORNING)
     Route: 065
     Dates: start: 20211105
  3. SACUBITRIL\VALSARTAN [Suspect]
     Active Substance: SACUBITRIL\VALSARTAN
     Dosage: 200 MG
     Route: 065
  4. FUROSEMIDE [Concomitant]
     Active Substance: FUROSEMIDE
     Indication: Fluid retention
     Dosage: 40 MG, QD (STARTED MANY YEARS AGO, ONCE DAILY IN THE MORNING)
     Route: 065
  5. DIGOXIN [Concomitant]
     Active Substance: DIGOXIN
     Indication: Cardiac disorder
     Dosage: 25 MG, QD
     Route: 065
     Dates: start: 202101

REACTIONS (8)
  - Cardiomegaly [Recovering/Resolving]
  - Chest discomfort [Unknown]
  - Gait inability [Unknown]
  - Fatigue [Recovering/Resolving]
  - Cardiac dysfunction [Recovering/Resolving]
  - Drug ineffective [Unknown]
  - Inappropriate schedule of product administration [Unknown]
  - Product use in unapproved indication [Unknown]

NARRATIVE: CASE EVENT DATE: 20200101
